FAERS Safety Report 4323023-X (Version None)
Quarter: 2004Q1

REPORT INFORMATION
  Report Type: 
  Country: None (occurrence: None)
  Receive Date: 20040324
  Receipt Date: 20040324
  Transmission Date: 20041129
  Serious: Yes (Other)
  Sender: FDA-Public Use
  Company Number: None

PATIENT
  Age: 85 Year
  Sex: Female

DRUGS (2)
  1. METOPROLOL [Suspect]
  2. VERAPAMIL [Concomitant]

REACTIONS (1)
  - BRADYCARDIA [None]
